FAERS Safety Report 12178792 (Version 1)
Quarter: 2016Q1

REPORT INFORMATION
  Report Type: Report from Study
  Country: FR (occurrence: FR)
  Receive Date: 20160315
  Receipt Date: 20160315
  Transmission Date: 20160526
  Serious: Yes (Hospitalization)
  Sender: FDA-Public Use
  Company Number: FR-ROCHE-1724879

PATIENT
  Sex: Male

DRUGS (2)
  1. BEVACIZUMAB [Suspect]
     Active Substance: BEVACIZUMAB
     Indication: NON-SMALL CELL LUNG CANCER
     Dosage: DATE OF LAST DOSE PRIOR TO EVENT: 16/NOV/2015
     Route: 065
     Dates: start: 20151102
  2. PACLITAXEL. [Suspect]
     Active Substance: PACLITAXEL
     Indication: NON-SMALL CELL LUNG CANCER
     Dosage: DATE OF LAST DOSE PRIOR TO EVENT: 16/NOV/2015
     Route: 065
     Dates: start: 20151102

REACTIONS (2)
  - Agranulocytosis [Not Recovered/Not Resolved]
  - Intestinal sepsis [Not Recovered/Not Resolved]

NARRATIVE: CASE EVENT DATE: 20151123
